FAERS Safety Report 5706806-0 (Version None)
Quarter: 2008Q2

REPORT INFORMATION
  Report Type: 
  Country: None (occurrence: None)
  Receive Date: 20080416
  Receipt Date: 20080404
  Transmission Date: 20081010
  Serious: Yes (Hospitalization, Disabling)
  Sender: FDA-Public Use
  Company Number: US-JNJFOC-20070805610

PATIENT
  Sex: Female
  Weight: 93.8 kg

DRUGS (3)
  1. ORTHO EVRA [Suspect]
     Indication: CONTRACEPTION
     Route: 062
  2. ORTHO EVRA [Suspect]
     Indication: MENSTRUATION IRREGULAR
     Route: 062
  3. ORTHO EVRA [Suspect]
     Indication: DYSMENORRHOEA
     Route: 062

REACTIONS (8)
  - ARTERIAL THROMBOSIS [None]
  - BACTERIAL INFECTION [None]
  - BLOOD CULTURE POSITIVE [None]
  - LEG AMPUTATION [None]
  - NAUSEA [None]
  - OEDEMA PERIPHERAL [None]
  - PHANTOM PAIN [None]
  - SKIN GRAFT [None]
